FAERS Safety Report 18114192 (Version 1)
Quarter: 2020Q3

REPORT INFORMATION
  Report Type: Spontaneous
  Country: US (occurrence: US)
  Receive Date: 20200805
  Receipt Date: 20200805
  Transmission Date: 20201103
  Serious: Yes (Disabling, Other)
  Sender: FDA-Public Use
  Company Number: None

PATIENT
  Age: 78 Year
  Sex: Male
  Weight: 95.4 kg

DRUGS (30)
  1. GLIPIZIDE. [Concomitant]
     Active Substance: GLIPIZIDE
  2. MELATONIN [Concomitant]
     Active Substance: MELATONIN
  3. CHROMIUM PIC [Concomitant]
  4. ESOMEPRAZOLE. [Concomitant]
     Active Substance: ESOMEPRAZOLE MAGNESIUM
  5. LISINOPRIL. [Concomitant]
     Active Substance: LISINOPRIL
  6. LOPERAMIDE [Concomitant]
     Active Substance: LOPERAMIDE
  7. MAGNESIUM [Concomitant]
     Active Substance: MAGNESIUM
  8. DMAE [Concomitant]
  9. TRUE CINNAMON [Concomitant]
  10. ACETYL L?CARATINE [Concomitant]
  11. INOSITOL [Concomitant]
     Active Substance: INOSITOL
  12. LUTEIN/ZEXANTHIN [Concomitant]
  13. METOPROLOL SUSS [Concomitant]
  14. UBIQUINOL [Concomitant]
     Active Substance: UBIQUINOL
  15. VIT D?3 [Concomitant]
  16. SAVELLA [Suspect]
     Active Substance: MILNACIPRAN HYDROCHLORIDE
     Indication: FIBROMYALGIA
     Route: 048
  17. METFORMIN [Concomitant]
     Active Substance: METFORMIN HYDROCHLORIDE
  18. SIMVASTATIN. [Concomitant]
     Active Substance: SIMVASTATIN
  19. CYCLOBENZAPRINE. [Concomitant]
     Active Substance: CYCLOBENZAPRINE
  20. GUAIFENESIN. [Concomitant]
     Active Substance: GUAIFENESIN
  21. VIT B?12 [Concomitant]
  22. BALAMCVED B?100 [Concomitant]
  23. 5?HTP [Concomitant]
  24. LECITHIN [Concomitant]
     Active Substance: LECITHIN
  25. TIME RELEASE VIT C [Concomitant]
  26. LIOTHYRONINE SOD [Concomitant]
     Active Substance: LIOTHYRONINE SODIUM
  27. HCTZ [Concomitant]
     Active Substance: HYDROCHLOROTHIAZIDE
  28. ALPHA LIPOIC ACID [Concomitant]
     Active Substance: .ALPHA.-LIPOIC ACID
  29. COCONUT OIL [Concomitant]
     Active Substance: COCONUT OIL
  30. VITAMIN E [Concomitant]
     Active Substance: .ALPHA.-TOCOPHEROL

REACTIONS (20)
  - Balance disorder [None]
  - Musculoskeletal stiffness [None]
  - Abdominal pain upper [None]
  - Skin lesion [None]
  - Insomnia [None]
  - Disturbance in attention [None]
  - Hyperhidrosis [None]
  - Heart rate increased [None]
  - Gait disturbance [None]
  - Back pain [None]
  - Dysphagia [None]
  - Blood pressure increased [None]
  - Blood glucose increased [None]
  - Fatigue [None]
  - Dizziness [None]
  - Chest discomfort [None]
  - Weight decreased [None]
  - Amnesia [None]
  - Muscle spasms [None]
  - Testicular swelling [None]

NARRATIVE: CASE EVENT DATE: 20200713
